FAERS Safety Report 4903664-9 (Version None)
Quarter: 2006Q1

REPORT INFORMATION
  Report Type: 
  Country: None (occurrence: None)
  Receive Date: 20060208
  Receipt Date: 20060206
  Transmission Date: 20060701
  Serious: Yes (Life-Threatening, Other)
  Sender: FDA-Public Use
  Company Number: PHFR2006GB00749

PATIENT
  Age: 79 Year
  Sex: Male

DRUGS (4)
  1. VALSARTAN [Suspect]
     Indication: HYPERTENSION
     Dosage: 80 MG/DAY
     Route: 048
     Dates: start: 20041122, end: 20060101
  2. PREDNISOLONE [Concomitant]
     Indication: NEPHROTIC SYNDROME
     Dosage: 5 MG/DAY
     Route: 048
     Dates: start: 20000101
  3. AMILORIDE HCL [Concomitant]
     Indication: NEPHROTIC SYNDROME
     Dosage: 5 MG/DAY
     Route: 048
     Dates: start: 20000101
  4. FRUSEMIDE [Concomitant]
     Indication: NEPHROTIC SYNDROME
     Route: 048
     Dates: start: 20000101

REACTIONS (7)
  - ASTHENIA [None]
  - BALANCE DISORDER [None]
  - CONDITION AGGRAVATED [None]
  - FALL [None]
  - MOBILITY DECREASED [None]
  - MUSCLE FATIGUE [None]
  - SUBDURAL HAEMATOMA [None]
